FAERS Safety Report 7742030-8 (Version None)
Quarter: 2011Q3

REPORT INFORMATION
  Report Type: 
  Country: None (occurrence: None)
  Receive Date: 20110912
  Receipt Date: 20110830
  Transmission Date: 20111222
  Serious: Yes (Hospitalization, Other)
  Sender: FDA-Public Use
  Company Number: US-JNJFOC-20110900502

PATIENT
  Age: 37 Year
  Sex: Female

DRUGS (6)
  1. ETRAVIRINE [Suspect]
     Indication: HIV INFECTION
     Route: 048
  2. HALOPERIDOL [Concomitant]
     Route: 065
     Dates: start: 20110721
  3. PHENYTOIN [Suspect]
     Indication: PRODUCT USED FOR UNKNOWN INDICATION
     Route: 065
     Dates: start: 20110721
  4. ACETAMINOPHEN [Suspect]
     Indication: PRODUCT USED FOR UNKNOWN INDICATION
     Route: 065
  5. NORVIR [Concomitant]
     Indication: HIV INFECTION
     Route: 048
  6. PREZISTA [Concomitant]
     Indication: HIV INFECTION
     Route: 048

REACTIONS (3)
  - ALANINE AMINOTRANSFERASE INCREASED [None]
  - ASPARTATE AMINOTRANSFERASE INCREASED [None]
  - HEAD INJURY [None]
